FAERS Safety Report 8155087-X (Version None)
Quarter: 2012Q1

REPORT INFORMATION
  Report Type: 
  Country: None (occurrence: None)
  Receive Date: 20120221
  Receipt Date: 20120216
  Transmission Date: 20120608
  Serious: Yes (Life-Threatening, Hospitalization, Other)
  Sender: FDA-Public Use
  Company Number: DE-B.I. PHARMACEUTICALS,INC./RIDGEFIELD-2011-DE-06572DE

PATIENT
  Sex: Male

DRUGS (3)
  1. PRADAXA [Suspect]
     Indication: ISCHAEMIC CARDIOMYOPATHY
  2. PRADAXA [Suspect]
     Indication: ATRIAL FIBRILLATION
     Dosage: 220 MG
     Route: 048
     Dates: start: 20111022, end: 20111022
  3. PRADAXA [Suspect]
     Indication: EMBOLISM

REACTIONS (6)
  - MELAENA [None]
  - HAEMATOCHEZIA [None]
  - HAEMOGLOBIN DECREASED [None]
  - HAEMATEMESIS [None]
  - GLOMERULAR FILTRATION RATE DECREASED [None]
  - UPPER GASTROINTESTINAL HAEMORRHAGE [None]
